FAERS Safety Report 13577259 (Version 1)
Quarter: 2017Q2

REPORT INFORMATION
  Report Type: Spontaneous
  Country: US (occurrence: US)
  Receive Date: 20170524
  Receipt Date: 20170524
  Transmission Date: 20170830
  Serious: Yes (Other)
  Sender: FDA-Public Use
  Company Number: US-MYLANLABS-2017M1030941

PATIENT

DRUGS (6)
  1. CYCLOPHOSPHAMIDE. [Suspect]
     Active Substance: CYCLOPHOSPHAMIDE
     Indication: EMBRYONAL RHABDOMYOSARCOMA
     Dosage: 1.2GM/M2 IN WEEKS 1, 4, 7, 10, 13 AND 16 (SINGLE DOSE)
     Route: 042
  2. DACTINOMYCIN [Suspect]
     Active Substance: DACTINOMYCIN
     Indication: EMBRYONAL RHABDOMYOSARCOMA
     Dosage: 0.045 MG/KG IN WEEKS 1, 16, 19 AND 22 (SINGLE DOSE)
     Route: 042
  3. RITUXIMAB [Suspect]
     Active Substance: RITUXIMAB
     Indication: EMBRYONAL RHABDOMYOSARCOMA
     Dosage: 375M/M2 AT WEEKS 1, 4, 7, 10, 13, 16, 19 AND 22 (SINGLE DOSE)
     Route: 042
  4. DOXORUBICIN [Suspect]
     Active Substance: DOXORUBICIN
     Indication: EMBRYONAL RHABDOMYOSARCOMA
     Dosage: 50MG/KG AT WEEKS 4, 7, 10 AND 13 (SINGLE DOSE)
     Route: 042
  5. PREDNISONE. [Suspect]
     Active Substance: PREDNISONE
     Indication: EMBRYONAL RHABDOMYOSARCOMA
     Dosage: 100MG DAILY FOR 5 DAYS A WEEKS; IN WEEKS 1, 4, 7, 10, 13, 16, 19 AND 22
     Route: 065
  6. VINCRISTINE [Suspect]
     Active Substance: VINCRISTINE
     Indication: EMBRYONAL RHABDOMYOSARCOMA
     Dosage: 1.5MG/M2 IN WEEKS 1 TO 6 AND 17 TO 22
     Route: 042

REACTIONS (2)
  - Mucosal inflammation [Unknown]
  - Neutropenia [Unknown]
